FAERS Safety Report 12346764 (Version 1)
Quarter: 2016Q2

REPORT INFORMATION
  Report Type: Spontaneous
  Country: NZ (occurrence: NZ)
  Receive Date: 20160509
  Receipt Date: 20160509
  Transmission Date: 20160815
  Serious: Yes (Other)
  Sender: FDA-Public Use
  Company Number: PHHY2016NZ053817

PATIENT
  Age: 76 Year
  Sex: Male
  Weight: 89 kg

DRUGS (1)
  1. ACLASTA [Suspect]
     Active Substance: ZOLEDRONIC ACID
     Indication: OSTEOPOROSIS
     Dosage: 5 MG100ML
     Route: 042
     Dates: start: 20150407

REACTIONS (5)
  - Rotator cuff syndrome [Unknown]
  - Clavicle fracture [Recovered/Resolved]
  - Fall [Unknown]
  - Exostosis [Unknown]
  - Osteosclerosis [Unknown]

NARRATIVE: CASE EVENT DATE: 20150821
